FAERS Safety Report 4778585-5 (Version None)
Quarter: 2005Q3

REPORT INFORMATION
  Report Type: 
  Country: None (occurrence: None)
  Receive Date: 20050926
  Receipt Date: 20050919
  Transmission Date: 20060218
  Serious: Yes (Death, Hospitalization)
  Sender: FDA-Public Use
  Company Number: 2005SE05287

PATIENT
  Age: 11826 Day
  Sex: Male
  Weight: 65 kg

DRUGS (3)
  1. SEROQUEL [Suspect]
     Indication: SCHIZOPHRENIA, PARANOID TYPE
     Route: 048
     Dates: start: 20050725, end: 20050808
  2. SEROQUEL [Suspect]
     Route: 048
     Dates: start: 20050808, end: 20050818
  3. PROPYCIL [Concomitant]
     Indication: HYPERTHYROIDISM
     Dosage: 3X1
     Route: 048
     Dates: start: 20050727, end: 20050818

REACTIONS (1)
  - CARDIAC ARREST [None]
